FAERS Safety Report 13639725 (Version 1)
Quarter: 2017Q2

REPORT INFORMATION
  Report Type: Spontaneous
  Country: US (occurrence: US)
  Receive Date: 20170609
  Receipt Date: 20170609
  Transmission Date: 20170830
  Serious: No
  Sender: FDA-Public Use
  Company Number: US-ROCHE-342585

PATIENT
  Sex: Female

DRUGS (2)
  1. KLONOPIN [Suspect]
     Active Substance: CLONAZEPAM
     Indication: NEUROPATHY PERIPHERAL
     Route: 048
  2. KLONOPIN [Suspect]
     Active Substance: CLONAZEPAM
     Dosage: BATCH NO.: U1047, EXPIRY DATE: JUNE 2011
     Route: 048

REACTIONS (4)
  - Muscle spasms [Unknown]
  - Drug ineffective for unapproved indication [Unknown]
  - Supraventricular extrasystoles [Unknown]
  - Palpitations [None]

NARRATIVE: CASE EVENT DATE: 20030610
